FAERS Safety Report 5279237-8 (Version None)
Quarter: 2007Q1

REPORT INFORMATION
  Report Type: 
  Country: None (occurrence: None)
  Receive Date: 20061213
  Receipt Date: 20051209
  Transmission Date: 20070707
  Serious: No
  Sender: FDA-Public Use
  Company Number: 2005UW18626

PATIENT
  Age: 43 Year
  Sex: Female
  Weight: 104.77 kg

DRUGS (3)
  1. SEROQUEL [Suspect]
     Indication: BIPOLAR DISORDER
     Dosage: 200 MG BID PO
     Route: 048
     Dates: start: 20050127
  2. SEROQUEL [Suspect]
     Indication: MANIA
     Dosage: 200 MG BID PO
     Route: 048
     Dates: start: 20050127
  3. XANAX [Concomitant]

REACTIONS (8)
  - ALOPECIA [None]
  - BLOOD ALKALINE PHOSPHATASE INCREASED [None]
  - BLOOD CHOLESTEROL INCREASED [None]
  - BLOOD GLUCOSE INCREASED [None]
  - BLOOD THYROID STIMULATING HORMONE INCREASED [None]
  - BLOOD TRIGLYCERIDES INCREASED [None]
  - GLYCOSYLATED HAEMOGLOBIN INCREASED [None]
  - MEAN CELL HAEMOGLOBIN INCREASED [None]
